FAERS Safety Report 19436230 (Version 1)
Quarter: 2021Q2

REPORT INFORMATION
  Report Type: Spontaneous
  Country: AT (occurrence: AT)
  Receive Date: 20210618
  Receipt Date: 20210618
  Transmission Date: 20210717
  Serious: Yes (Hospitalization)
  Sender: FDA-Public Use
  Company Number: AT-TEVA-2021-AT-1922669

PATIENT
  Age: 49 Year
  Sex: Female
  Weight: 85 kg

DRUGS (5)
  1. AJOVY [Suspect]
     Active Substance: FREMANEZUMAB-VFRM
     Indication: MIGRAINE
     Dosage: 225MG S.C., FIRST RECEIVED
     Dates: start: 20210421
  2. SAROTEN 25MG [Concomitant]
     Dosage: 25 MILLIGRAM DAILY; 1?0?0
  3. BELOC 100MG [Concomitant]
     Dosage: 1X1
  4. TOPIRAMAT 50MG [Concomitant]
     Active Substance: TOPIRAMATE
     Dosage: 1X1
  5. IXEL 50MG [Concomitant]
     Dosage: 50 MILLIGRAM DAILY; 1?0?0

REACTIONS (2)
  - Cerebrovascular accident [Recovering/Resolving]
  - Right hemisphere deficit syndrome [Recovering/Resolving]

NARRATIVE: CASE EVENT DATE: 20210424
